FAERS Safety Report 7009442-1 (Version None)
Quarter: 2010Q3

REPORT INFORMATION
  Report Type: 
  Country: None (occurrence: None)
  Receive Date: 20100921
  Receipt Date: 20100903
  Transmission Date: 20110219
  Serious: Yes (Hospitalization)
  Sender: FDA-Public Use
  Company Number: 2010003813

PATIENT
  Age: 77 Year
  Sex: Female

DRUGS (2)
  1. ERLOTINIB HYDROCHLORIDE [Suspect]
     Indication: BRONCHIOLOALVEOLAR CARCINOMA
     Dosage: (100 MG,QD),ORAL
     Route: 048
     Dates: start: 20100108
  2. BEVACIZUMAB [Suspect]
     Indication: BRONCHIOLOALVEOLAR CARCINOMA
     Dosage: (15 MG/KG,1 IN 21 D), INTRAVENOUS
     Route: 042
     Dates: start: 20100108

REACTIONS (6)
  - CEREBRAL ISCHAEMIA [None]
  - CEREBROVASCULAR ACCIDENT [None]
  - DIARRHOEA [None]
  - DIPLOPIA [None]
  - DYSPHAGIA [None]
  - PLEURAL EFFUSION [None]
